FAERS Safety Report 13737559 (Version 1)
Quarter: 2017Q3

REPORT INFORMATION
  Report Type: Spontaneous
  Country: US (occurrence: US)
  Receive Date: 20170710
  Receipt Date: 20170710
  Transmission Date: 20171127
  Serious: No
  Sender: FDA-Public Use
  Company Number: US-SAOL THERAPEUTICS-2016SAO00969

PATIENT
  Sex: Male

DRUGS (3)
  1. BACLOFEN. [Suspect]
     Active Substance: BACLOFEN
     Indication: MULTIPLE SCLEROSIS
     Dosage: 500 MG, \DAY
     Route: 037
  2. DIAZEPAM. [Concomitant]
     Active Substance: DIAZEPAM
  3. BACLOFEN. [Suspect]
     Active Substance: BACLOFEN
     Indication: MUSCLE SPASTICITY
     Dosage: 425 MG, \DAY

REACTIONS (6)
  - Muscle tightness [Unknown]
  - Muscle spasticity [Unknown]
  - Urinary tract infection [Not Recovered/Not Resolved]
  - Urinary retention [Unknown]
  - Device malfunction [Unknown]
  - Pain [Unknown]

NARRATIVE: CASE EVENT DATE: 2016
